FAERS Safety Report 5370149-8 (Version None)
Quarter: 2007Q2

REPORT INFORMATION
  Report Type: 
  Country: None (occurrence: None)
  Receive Date: 20070613
  Receipt Date: 20070326
  Transmission Date: 20071010
  Serious: No
  Sender: FDA-Public Use
  Company Number: IND-AE-07-SAN-012

PATIENT
  Sex: Female
  Weight: 67.1324 kg

DRUGS (2)
  1. SANCTURA [Suspect]
     Indication: POLLAKIURIA
     Dosage: 20MG - QD - ORAL
     Route: 048
     Dates: start: 20070315, end: 20070324
  2. NABUMETONE [Concomitant]

REACTIONS (2)
  - ACNE [None]
  - BLISTER [None]
